FAERS Safety Report 5694566-1 (Version None)
Quarter: 2008Q2

REPORT INFORMATION
  Report Type: 
  Country: None (occurrence: None)
  Receive Date: 20080404
  Receipt Date: 20080328
  Transmission Date: 20081010
  Serious: Yes (Hospitalization)
  Sender: FDA-Public Use
  Company Number: JP-AVENTIS-200810999JP

PATIENT
  Age: 42 Year
  Sex: Female

DRUGS (2)
  1. AMARYL [Suspect]
     Route: 048
     Dates: start: 20080324, end: 20080324
  2. MELBIN                             /00082702/ [Suspect]
     Route: 048
     Dates: start: 20080324, end: 20080324

REACTIONS (2)
  - INTENTIONAL OVERDOSE [None]
  - LACTIC ACIDOSIS [None]
